FAERS Safety Report 7721302-7 (Version None)
Quarter: 2011Q3

REPORT INFORMATION
  Report Type: 
  Country: None (occurrence: None)
  Receive Date: 20110831
  Receipt Date: 20110819
  Transmission Date: 20111222
  Serious: Yes (Hospitalization, Other)
  Sender: FDA-Public Use
  Company Number: PHHY2011US57014

PATIENT
  Sex: Female

DRUGS (21)
  1. BONIVA [Concomitant]
     Dosage: 150 MG, UNK
  2. PLAVIX [Concomitant]
     Dosage: 75 MG, UNK
  3. LEXAPRO [Concomitant]
     Dosage: 10 MG, QHS
  4. ATROVENT [Concomitant]
     Dosage: UNK UKN, BID
  5. DIGOXIN [Concomitant]
     Dosage: 0.125 MG, QD
  6. TORSEMIDE [Concomitant]
     Dosage: 10 MG, DAILY
  7. GLIMEPIRIDE [Concomitant]
     Dosage: 1 MG, UNK
  8. VITAMIN B COMPLEX CAP [Concomitant]
     Dosage: UNK UKN, UNK
  9. COMBIVENT [Concomitant]
     Dosage: UNK UKN, UNK
  10. DEMADEX [Concomitant]
     Dosage: UNK UKN, UNK
  11. CYMBALTA [Concomitant]
     Dosage: 60 MG, DAILY
  12. TENORMIN [Concomitant]
     Dosage: 12.5 MG, UNK
  13. TRACLEER [Concomitant]
     Dosage: UNK UKN, UNK
  14. SIMAVASTATIN [Concomitant]
     Dosage: 20 MG, UNK
  15. CLONIDINE [Concomitant]
     Dosage: 0.1 MG, QD
  16. GILENYA [Suspect]
     Indication: MULTIPLE SCLEROSIS
     Dosage: 0.5 MG, QD
     Route: 048
  17. JANUVIA [Concomitant]
     Dosage: 25 MG, UNK
  18. SPIRIVA [Concomitant]
     Dosage: UNK UKN, QD
  19. ADVAIR DISKUS 100/50 [Concomitant]
     Dosage: 250MCG FLUTICASONE PROPIONATE+ 50 MCG SALMETEROL XINAFOATE, BID
  20. OXYGEN [Concomitant]
     Dosage: UNK UKN, UNK
     Route: 045
  21. REVATIO [Concomitant]
     Dosage: 20 MG, UNK

REACTIONS (16)
  - ARTERIOSCLEROSIS [None]
  - OEDEMA PERIPHERAL [None]
  - PLATELET COUNT DECREASED [None]
  - GLOMERULONEPHRITIS RAPIDLY PROGRESSIVE [None]
  - RED CELL DISTRIBUTION WIDTH INCREASED [None]
  - BLOOD GLUCOSE INCREASED [None]
  - RED BLOOD CELL COUNT DECREASED [None]
  - BASE EXCESS [None]
  - KIDNEY FIBROSIS [None]
  - GLOMERULAR FILTRATION RATE DECREASED [None]
  - CONSTIPATION [None]
  - LYMPHOCYTE COUNT DECREASED [None]
  - HAEMATOCRIT DECREASED [None]
  - DYSPNOEA [None]
  - RENAL FAILURE ACUTE [None]
  - HAEMOGLOBIN DECREASED [None]
